FAERS Safety Report 21610145 (Version 1)
Quarter: 2022Q4

REPORT INFORMATION
  Report Type: Spontaneous
  Country: US (occurrence: US)
  Receive Date: 20221117
  Receipt Date: 20221117
  Transmission Date: 20230113
  Serious: No
  Sender: FDA-Public Use
  Company Number: US-UNITED THERAPEUTICS-UNT-2022-027365

PATIENT
  Sex: Female

DRUGS (1)
  1. REMODULIN [Suspect]
     Active Substance: TREPROSTINIL
     Indication: Peripheral arterial occlusive disease
     Dosage: UNK, CONTINUING
     Route: 058

REACTIONS (3)
  - Peripheral arterial occlusive disease [Unknown]
  - Infusion site pain [Unknown]
  - Off label use [Unknown]
